FAERS Safety Report 4525000-2 (Version None)
Quarter: 2004Q4

REPORT INFORMATION
  Report Type: 
  Country: None (occurrence: None)
  Receive Date: 20041210
  Receipt Date: 20041124
  Transmission Date: 20050328
  Serious: Yes (Death)
  Sender: FDA-Public Use
  Company Number: 2004S1002316

PATIENT
  Age: 51 Year
  Sex: Female

DRUGS (23)
  1. CLOZAPINE [Suspect]
     Indication: AGITATION
     Dosage: 100MG BID ORAL
     Route: 048
     Dates: start: 20030905, end: 20040612
  2. CLOZAPINE [Suspect]
     Indication: HUNTINGTON'S CHOREA
     Dosage: 100MG BID ORAL
     Route: 048
     Dates: start: 20030905, end: 20040612
  3. CLOZAPINE [Suspect]
     Indication: PSYCHOTIC DISORDER
     Dosage: 100MG BID ORAL
     Route: 048
     Dates: start: 20030905, end: 20040612
  4. MORPHINE SULFATE [Concomitant]
  5. METRONIDAZOLE [Concomitant]
  6. POTASSIUM CHLORIDE [Concomitant]
  7. LORAZEPAM [Concomitant]
  8. MEMANTINE [Concomitant]
  9. VENLAFAXINE HCL [Concomitant]
  10. DONEPEZIL HCL [Concomitant]
  11. MIRTAZAPINE [Concomitant]
  12. PANTOPRAZOLE [Concomitant]
  13. CALCIUM CARBONATE WITH VITAMIN D [Concomitant]
  14. LOPERAMIDE HCL [Concomitant]
  15. SENNA/DOCUSATE [Concomitant]
  16. ACETAMINOPHEN [Concomitant]
  17. MAGNESIUM HYDROXIDE TAB [Concomitant]
  18. BISACODYL [Concomitant]
  19. BENEFIBER [Concomitant]
  20. CEFTRIAXONE SODIUM [Concomitant]
  21. LEVOFLOXACIN [Concomitant]
  22. CEFOTAXIME [Concomitant]
  23. DEXTROSE 5% NORMAL SALINE SOLUTION [Concomitant]

REACTIONS (2)
  - HUNTINGTON'S CHOREA [None]
  - PNEUMONIA [None]
